FAERS Safety Report 19103319 (Version 1)
Quarter: 2021Q2

REPORT INFORMATION
  Report Type: Spontaneous
  Country: US (occurrence: US)
  Receive Date: 20210407
  Receipt Date: 20210407
  Transmission Date: 20210717
  Serious: Yes (Other)
  Sender: FDA-Public Use
  Company Number: US-ROCHE-2781899

PATIENT
  Sex: Female

DRUGS (40)
  1. XOLAIR [Suspect]
     Active Substance: OMALIZUMAB
  2. XOLAIR [Suspect]
     Active Substance: OMALIZUMAB
     Indication: IDIOPATHIC URTICARIA
     Route: 058
     Dates: start: 20201229
  3. ALPRAZOLAM. [Concomitant]
     Active Substance: ALPRAZOLAM
     Indication: ANXIETY
     Route: 048
  4. CYCLOBENZAPRINE. [Concomitant]
     Active Substance: CYCLOBENZAPRINE
     Route: 048
  5. FAMOTIDINE. [Concomitant]
     Active Substance: FAMOTIDINE
     Route: 048
  6. TYLENOL [Concomitant]
     Active Substance: ACETAMINOPHEN
     Route: 048
  7. NALTREXONE [Concomitant]
     Active Substance: NALTREXONE
  8. NADOLOL. [Concomitant]
     Active Substance: NADOLOL
     Route: 048
  9. XOLAIR [Suspect]
     Active Substance: OMALIZUMAB
     Indication: ASTHMA
     Route: 058
     Dates: start: 20201125
  10. XOLAIR [Suspect]
     Active Substance: OMALIZUMAB
  11. CROMOLYN [Concomitant]
     Active Substance: CROMOLYN
     Dosage: 10 ML  4 TIMES A DAY
     Route: 048
  12. XOLAIR [Suspect]
     Active Substance: OMALIZUMAB
  13. DICLOFENAC [Concomitant]
     Active Substance: DICLOFENAC
     Route: 061
  14. TRIAMCINOLONE ACETONIDE. [Concomitant]
     Active Substance: TRIAMCINOLONE ACETONIDE
     Route: 061
  15. XOLAIR [Suspect]
     Active Substance: OMALIZUMAB
  16. XOLAIR [Suspect]
     Active Substance: OMALIZUMAB
  17. PANTOPRAZOLE [Concomitant]
     Active Substance: PANTOPRAZOLE
     Route: 048
  18. ALTAVERA [Concomitant]
     Active Substance: ETHINYL ESTRADIOL\LEVONORGESTREL
     Dosage: 0.15 MG? 0.03 MG
     Route: 048
  19. AZELASTINE. [Concomitant]
     Active Substance: AZELASTINE HYDROCHLORIDE
     Dosage: 0.05 % FOR 30 DAYS
     Route: 047
  20. CANNABIDIOL [Concomitant]
     Active Substance: CANNABIDIOL
     Route: 048
  21. TRAMADOL. [Concomitant]
     Active Substance: TRAMADOL
     Route: 048
  22. ASCORBIC ACID. [Concomitant]
     Active Substance: ASCORBIC ACID
     Route: 048
  23. BREO ELLIPTA [Concomitant]
     Active Substance: FLUTICASONE FUROATE\VILANTEROL TRIFENATATE
     Dosage: 200 MCG?26 MCG INHALE 1 PUFF BY MOUTH EVERY DAY
     Route: 048
  24. CLOBETASOL [Concomitant]
     Active Substance: CLOBETASOL
     Route: 061
  25. EPINEPHRINE. [Concomitant]
     Active Substance: EPINEPHRINE
  26. FLUDROCORTISONE [Concomitant]
     Active Substance: FLUDROCORTISONE
     Route: 048
  27. VENTOLIN [Concomitant]
     Active Substance: ALBUTEROL SULFATE
     Dosage: 2 PUFFS EVERY 4 HRS
  28. XIFAXAN [Concomitant]
     Active Substance: RIFAXIMIN
  29. VALACYCLOVIR [Concomitant]
     Active Substance: VALACYCLOVIR HYDROCHLORIDE
     Route: 048
  30. XOLAIR [Suspect]
     Active Substance: OMALIZUMAB
  31. XOLAIR [Suspect]
     Active Substance: OMALIZUMAB
     Route: 058
     Dates: start: 20210126
  32. XOLAIR [Suspect]
     Active Substance: OMALIZUMAB
  33. XOLAIR [Suspect]
     Active Substance: OMALIZUMAB
  34. PREVIDENT [Concomitant]
     Active Substance: SODIUM FLUORIDE
  35. PREDNISONE. [Concomitant]
     Active Substance: PREDNISONE
     Route: 048
  36. XOLAIR [Suspect]
     Active Substance: OMALIZUMAB
     Route: 058
     Dates: start: 20210222
  37. DIPHENHYDRAMINE. [Concomitant]
     Active Substance: DIPHENHYDRAMINE
     Route: 048
  38. DULOXETINE. [Concomitant]
     Active Substance: DULOXETINE
  39. SCOPOLAMINE [Concomitant]
     Active Substance: SCOPOLAMINE
     Dosage: 1 PATCH EVERY 72 HR
     Route: 062
  40. ONDANSETRON [Concomitant]
     Active Substance: ONDANSETRON

REACTIONS (5)
  - Fatigue [Unknown]
  - Headache [Unknown]
  - Arthralgia [Unknown]
  - Mast cell activation syndrome [Unknown]
  - Flushing [Unknown]
